FAERS Safety Report 7120127-3 (Version None)
Quarter: 2010Q4

REPORT INFORMATION
  Report Type: 
  Country: None (occurrence: None)
  Receive Date: 20101123
  Receipt Date: 20101116
  Transmission Date: 20110411
  Serious: Yes (Death)
  Sender: FDA-Public Use
  Company Number: CA-JNJFOC-20101105982

PATIENT
  Sex: Male
  Weight: 76 kg

DRUGS (19)
  1. REMICADE [Suspect]
     Indication: CROHN'S DISEASE
     Dosage: TOTAL OF 9 INFUSIONS
     Route: 042
  2. MESASAL [Concomitant]
  3. AZATHIOPRINE [Concomitant]
     Dosage: THREE TABS DAILY
  4. OMEPRAZOLE [Concomitant]
  5. ATROVENT [Concomitant]
     Dosage: 4 PUFFS
  6. SEREVENT DISK (SALMETEROL) [Concomitant]
     Dosage: ONE PUFF
  7. RHOVANE [Concomitant]
  8. TRAZODONE [Concomitant]
  9. FOLIC ACID [Concomitant]
  10. EXTRA STRENGTH TYLENOL [Concomitant]
     Dosage: 2 TABS
  11. VITAMIN B-12 [Concomitant]
     Route: 030
  12. CALCIUM [Concomitant]
  13. VITAMIN D3 [Concomitant]
  14. SIMVASTATIN [Concomitant]
  15. RIFALDIN [Concomitant]
  16. ZOPICLONE [Concomitant]
  17. ISONIAZID [Concomitant]
  18. VITAMIN B6 [Concomitant]
  19. RAMIPRIL [Concomitant]

REACTIONS (1)
  - DEATH [None]
